FAERS Safety Report 8052632-X (Version None)
Quarter: 2012Q1

REPORT INFORMATION
  Report Type: 
  Country: None (occurrence: None)
  Receive Date: 20120118
  Receipt Date: 20120110
  Transmission Date: 20120608
  Serious: Yes (Life-Threatening, Hospitalization)
  Sender: FDA-Public Use
  Company Number: DE-ASTELLAS-2011US004974

PATIENT
  Sex: Male

DRUGS (5)
  1. BUDESONIDE [Concomitant]
     Indication: ASTHMA
     Dosage: 1 DF, UNKNOWN/D
     Route: 055
     Dates: start: 20070101
  2. RITALIN [Concomitant]
     Indication: DISTURBANCE IN ATTENTION
     Dosage: 20 MG, UNKNOWN/D
     Route: 048
     Dates: start: 20070101
  3. TACROLIMUS [Suspect]
     Indication: DERMATITIS ATOPIC
     Dosage: 0.03 %, BID
     Route: 061
     Dates: start: 20050801
  4. CORTISONE ACETATE [Concomitant]
     Indication: HYPERSENSITIVITY
     Dosage: UNK
     Route: 042
  5. METHYLPHENIDAT [Concomitant]
     Indication: DISTURBANCE IN ATTENTION
     Dosage: 20 MG, UNKNOWN/D
     Route: 048
     Dates: start: 20070101

REACTIONS (1)
  - ANAPHYLACTIC REACTION [None]
